FAERS Safety Report 14100930 (Version 1)
Quarter: 2017Q4

REPORT INFORMATION
  Report Type: Spontaneous
  Country: DE (occurrence: DE)
  Receive Date: 20171018
  Receipt Date: 20171018
  Transmission Date: 20180321
  Serious: Yes (Hospitalization)
  Sender: FDA-Public Use
  Company Number: DE-TORRENT-00007203

PATIENT
  Age: 5 Year
  Sex: Male
  Weight: 34 kg

DRUGS (8)
  1. CLOBAZAM [Concomitant]
     Active Substance: CLOBAZAM
  2. CIRCADIN [Concomitant]
     Active Substance: MELATONIN
  3. HYDROCORTISONE. [Concomitant]
     Active Substance: HYDROCORTISONE
  4. SULTIAME [Concomitant]
     Active Substance: SULTHIAME
  5. LEVOTHYROXINE. [Concomitant]
     Active Substance: LEVOTHYROXINE
  6. SALBUTAMOL [Concomitant]
     Active Substance: ALBUTEROL
  7. TOPIRAMATE. [Suspect]
     Active Substance: TOPIRAMATE
  8. VALPROINSAEURE [Concomitant]
     Active Substance: VALPROIC ACID

REACTIONS (3)
  - Disturbance in attention [Recovered/Resolved]
  - Epilepsy [Recovered/Resolved]
  - Drug intolerance [Unknown]

NARRATIVE: CASE EVENT DATE: 20160703
